FAERS Safety Report 4836689-2 (Version None)
Quarter: 2005Q4

REPORT INFORMATION
  Report Type: 
  Country: None (occurrence: None)
  Receive Date: 20051123
  Receipt Date: 20051115
  Transmission Date: 20060501
  Serious: Yes (Hospitalization)
  Sender: FDA-Public Use
  Company Number: ZA-MERCK-0511ZAF00019

PATIENT
  Sex: Male

DRUGS (1)
  1. INVANZ [Suspect]
     Route: 042

REACTIONS (1)
  - GILBERT'S SYNDROME [None]
